FAERS Safety Report 6505167-7 (Version None)
Quarter: 2009Q4

REPORT INFORMATION
  Report Type: 
  Country: None (occurrence: None)
  Receive Date: 20091218
  Receipt Date: 20091211
  Transmission Date: 20100525
  Serious: Yes (Other)
  Sender: FDA-Public Use
  Company Number: PHHY2009CA55238

PATIENT
  Sex: Female

DRUGS (1)
  1. FEMARA [Suspect]
     Indication: BREAST CANCER
     Dosage: 2.5 MG, UNK
     Dates: start: 20090701

REACTIONS (7)
  - DRY MOUTH [None]
  - DYSARTHRIA [None]
  - EYE IRRITATION [None]
  - HOT FLUSH [None]
  - INSOMNIA [None]
  - JOINT STIFFNESS [None]
  - VISUAL IMPAIRMENT [None]
